FAERS Safety Report 4810334-4 (Version None)
Quarter: 2005Q4

REPORT INFORMATION
  Report Type: 
  Country: None (occurrence: None)
  Receive Date: 20051026
  Receipt Date: 20050714
  Transmission Date: 20060501
  Serious: Yes (Other)
  Sender: FDA-Public Use
  Company Number: US-ROCHE-411027

PATIENT
  Age: 50 Year
  Sex: Female

DRUGS (6)
  1. PEGASYS [Suspect]
     Route: 058
     Dates: start: 20050503
  2. PEGASYS [Suspect]
     Dosage: DOSE OF PEG INTERFERON ALFA 2A DECREASED TO 135 MCG.
     Route: 058
  3. COPEGUS [Suspect]
     Route: 048
     Dates: start: 20050503
  4. ALDACTONE [Concomitant]
     Indication: ASCITES
     Dosage: DAILY DOSING.
     Route: 048
     Dates: start: 20030615
  5. LASIX [Concomitant]
     Indication: ASCITES
     Dosage: DAILY DOSING.
     Route: 048
     Dates: start: 20030615
  6. VICODIN [Concomitant]
     Indication: PAIN
     Route: 048

REACTIONS (6)
  - ASCITES [None]
  - DEPRESSION [None]
  - FATIGUE [None]
  - PLATELET COUNT DECREASED [None]
  - WEIGHT DECREASED [None]
  - WHITE BLOOD CELL COUNT DECREASED [None]
